FAERS Safety Report 6141361-5 (Version None)
Quarter: 2009Q2

REPORT INFORMATION
  Report Type: 
  Country: None (occurrence: None)
  Receive Date: 20090402
  Receipt Date: 20090325
  Transmission Date: 20091009
  Serious: Yes (Death)
  Sender: FDA-Public Use
  Company Number: GB-B.I. PHARMACEUTICALS,INC./RIDGEFIELD-2009-DE-02598GD

PATIENT

DRUGS (4)
  1. DIPYRIDAMOLE [Suspect]
  2. ASPIRIN [Suspect]
  3. DALTEPARIN SODIUM [Suspect]
  4. ENOXAPARIN SODIUM [Suspect]

REACTIONS (1)
  - GASTROINTESTINAL HAEMORRHAGE [None]
